FAERS Safety Report 12381473 (Version 1)
Quarter: 2016Q2

REPORT INFORMATION
  Report Type: Spontaneous
  Country: US (occurrence: US)
  Receive Date: 20160518
  Receipt Date: 20160518
  Transmission Date: 20160815
  Serious: Yes (Death, Hospitalization, Other)
  Sender: FDA-Public Use
  Company Number: US-PFIZER INC-2016261781

PATIENT
  Age: 57 Year
  Sex: Male

DRUGS (3)
  1. BABY ASPIRIN [Concomitant]
     Active Substance: ASPIRIN
     Indication: CEREBROVASCULAR ACCIDENT PROPHYLAXIS
     Dosage: STANDARD DOSE
     Dates: end: 201604
  2. EFFEXOR XR [Suspect]
     Active Substance: VENLAFAXINE HYDROCHLORIDE
     Indication: DEPRESSION
     Dosage: 75 MG, 2X/DAY
     Route: 048
     Dates: end: 20160417
  3. SIMVA [Concomitant]
     Indication: BLOOD CHOLESTEROL
     Dosage: 40 MG, 1X/DAY
     Dates: end: 201604

REACTIONS (8)
  - Aortic dissection [Fatal]
  - Transient ischaemic attack [Recovered/Resolved]
  - Cerebrovascular accident [Unknown]
  - Migraine [Not Recovered/Not Resolved]
  - Nightmare [Recovered/Resolved]
  - Headache [Unknown]
  - Nausea [Unknown]
  - Neck pain [Unknown]

NARRATIVE: CASE EVENT DATE: 2015
